FAERS Safety Report 6269053-2 (Version None)
Quarter: 2009Q3

REPORT INFORMATION
  Report Type: 
  Country: None (occurrence: None)
  Receive Date: 20090715
  Receipt Date: 20090703
  Transmission Date: 20100115
  Serious: Yes (Other)
  Sender: FDA-Public Use
  Company Number: CA-PFIZER INC-2009235948

PATIENT
  Age: 75 Year

DRUGS (2)
  1. PREGABALIN [Suspect]
     Indication: HERPES ZOSTER
     Dosage: 50 MG, UNK
     Dates: start: 20090601
  2. PREDNISONE [Concomitant]
     Dosage: UNK

REACTIONS (2)
  - FAECES DISCOLOURED [None]
  - PETECHIAE [None]
